FAERS Safety Report 6655447-X (Version None)
Quarter: 2010Q1

REPORT INFORMATION
  Report Type: 
  Country: None (occurrence: None)
  Receive Date: 20100329
  Receipt Date: 20100317
  Transmission Date: 20100710
  Serious: Yes (Hospitalization, Other)
  Sender: FDA-Public Use
  Company Number: JP-ELI_LILLY_AND_COMPANY-JP200912000633

PATIENT
  Age: 79 Year
  Sex: Male
  Weight: 62 kg

DRUGS (11)
  1. PEMETREXED [Suspect]
     Indication: LARGE CELL LUNG CANCER STAGE IV
     Dosage: 800 MG, OTHER
     Route: 042
     Dates: start: 20091111, end: 20091111
  2. CRAVIT [Concomitant]
     Indication: INFLAMMATION
     Dosage: 500 MG, DAILY (1/D)
     Route: 048
     Dates: start: 20091111, end: 20091113
  3. SINSERON [Concomitant]
     Indication: PROPHYLAXIS OF NAUSEA AND VOMITING
     Dosage: 8 MG, DAILY (1/D)
     Route: 048
     Dates: start: 20091111, end: 20091115
  4. PANVITAN [Concomitant]
     Dosage: 1 G, DAILY (1/D)
     Route: 048
     Dates: start: 20091104, end: 20091201
  5. HYDROXOCOBALAMIN ACETATE [Concomitant]
     Route: 030
     Dates: start: 20091104, end: 20091104
  6. CALONAL [Concomitant]
     Indication: ANALGESIC THERAPY
     Dates: start: 20091111, end: 20091113
  7. MEROPEN /01250502/ [Concomitant]
     Indication: INFLAMMATION
     Route: 042
     Dates: start: 20091116, end: 20091125
  8. SAXIZON [Concomitant]
     Indication: PROPHYLAXIS
     Route: 042
     Dates: start: 20091121, end: 20091121
  9. LANSOPRAZOLE [Concomitant]
     Indication: PROPHYLAXIS
     Dates: start: 20091204
  10. RILMAZAFONE HYDROCHLORIDE [Concomitant]
     Indication: INSOMNIA
     Dosage: 2 MG, DAILY (1/D)
     Route: 048
     Dates: start: 20091122, end: 20091207
  11. GLYCYRRHIZIC ACID [Concomitant]
     Indication: ALANINE AMINOTRANSFERASE INCREASED
     Route: 042
     Dates: start: 20091120, end: 20091126

REACTIONS (4)
  - DISSEMINATED INTRAVASCULAR COAGULATION [None]
  - INTERSTITIAL LUNG DISEASE [None]
  - NEUTROPHIL COUNT DECREASED [None]
  - PLATELET COUNT DECREASED [None]
